FAERS Safety Report 7388481-5 (Version None)
Quarter: 2011Q2

REPORT INFORMATION
  Report Type: 
  Country: None (occurrence: None)
  Receive Date: 20110401
  Receipt Date: 20110318
  Transmission Date: 20111010
  Serious: No
  Sender: FDA-Public Use
  Company Number: US-JNJFOC-20110308456

PATIENT
  Sex: Female
  Weight: 56.7 kg

DRUGS (5)
  1. ZANAFLEX [Concomitant]
     Route: 048
  2. ROXICODONE [Concomitant]
     Route: 048
  3. AMBIEN CR [Concomitant]
     Route: 048
  4. DURAGESIC-50 [Suspect]
     Indication: FIBROMYALGIA
     Route: 062
  5. SENOKOT [Concomitant]
     Route: 048

REACTIONS (1)
  - TREATMENT NONCOMPLIANCE [None]
